FAERS Safety Report 4325750-7 (Version None)
Quarter: 2004Q1

REPORT INFORMATION
  Report Type: 
  Country: None (occurrence: None)
  Receive Date: 20040324
  Receipt Date: 20040312
  Transmission Date: 20041129
  Serious: Yes (Death)
  Sender: FDA-Public Use
  Company Number: US-JNJFOC-20040303163

PATIENT
  Age: 81 Year
  Sex: Female

DRUGS (5)
  1. INFLIXIMAB (INFLIXIMAB, RECOMBINANT) LYOPHILIZED POWDER [Suspect]
     Indication: RHEUMATOID ARTHRITIS
     Dosage: INTRAVENOUS
     Route: 042
     Dates: start: 20020117
  2. METHOTREXATE [Concomitant]
  3. CELBREX (CELECOXIB) [Concomitant]
  4. PREDNISONE [Concomitant]
  5. ULTRAM [Concomitant]

REACTIONS (1)
  - DEATH [None]
